FAERS Safety Report 20826292 (Version 1)
Quarter: 2022Q2

REPORT INFORMATION
  Report Type: Spontaneous
  Country: CN (occurrence: None)
  Receive Date: 20220513
  Receipt Date: 20220513
  Transmission Date: 20220721
  Serious: Yes (Other)
  Sender: FDA-Public Use
  Company Number: 2022A181885

PATIENT
  Age: 48 Year
  Sex: Female
  Weight: 45 kg

DRUGS (4)
  1. OSIMERTINIB MESYLATE [Suspect]
     Active Substance: OSIMERTINIB MESYLATE
     Indication: Lung neoplasm malignant
     Route: 048
     Dates: start: 20210715, end: 20220506
  2. OSIMERTINIB MESYLATE [Suspect]
     Active Substance: OSIMERTINIB MESYLATE
     Indication: Lung adenocarcinoma stage IV
     Route: 048
     Dates: start: 20210715, end: 20220506
  3. SINTILIMAB [Suspect]
     Active Substance: SINTILIMAB
     Indication: Lung neoplasm malignant
     Dosage: 0.200000 G, Q28D
     Route: 041
     Dates: start: 20220314, end: 20220413
  4. SINTILIMAB [Suspect]
     Active Substance: SINTILIMAB
     Indication: Lung adenocarcinoma stage IV
     Dosage: 0.200000 G, Q28D
     Route: 041
     Dates: start: 20220314, end: 20220413

REACTIONS (1)
  - Myelosuppression [Unknown]

NARRATIVE: CASE EVENT DATE: 20220424
